FAERS Safety Report 4632935-9 (Version None)
Quarter: 2005Q2

REPORT INFORMATION
  Report Type: 
  Country: None (occurrence: None)
  Receive Date: 20050412
  Receipt Date: 20050301
  Transmission Date: 20051028
  Serious: Yes (Other)
  Sender: FDA-Public Use
  Company Number: US-ROCHE-397274

PATIENT
  Age: 10 Year
  Sex: Male
  Weight: 32.2 kg

DRUGS (4)
  1. TAMIFLU [Suspect]
     Route: 048
     Dates: start: 20050217, end: 20050217
  2. ADVAIR DISKUS 100/50 [Concomitant]
     Indication: ASTHMA
     Route: 055
     Dates: start: 20030513
  3. XOPENEX [Concomitant]
     Indication: ASTHMA
     Dosage: TAKEN 3 TO 4 TIMES A DAY.
     Route: 055
     Dates: start: 20050217
  4. UNSPECIFIED DRUG [Concomitant]
     Indication: COUGH
     Dosage: DRUG NAME REPORTED AS DIRAPHEN FORTE.  STRENGTH AND FORMULATION: GUIAF 1200/PE/DM
     Route: 048
     Dates: start: 20050217

REACTIONS (1)
  - HAEMATEMESIS [None]
